FAERS Safety Report 7070149-6 (Version None)
Quarter: 2010Q4

REPORT INFORMATION
  Report Type: 
  Country: None (occurrence: None)
  Receive Date: 20101028
  Receipt Date: 20100824
  Transmission Date: 20110411
  Serious: No
  Sender: FDA-Public Use
  Company Number: US-WYE-H17194010

PATIENT
  Sex: Female
  Weight: 86.26 kg

DRUGS (8)
  1. PROTONIX [Suspect]
     Indication: GASTROOESOPHAGEAL REFLUX DISEASE
     Dates: start: 20100820, end: 20100822
  2. PROTONIX [Suspect]
     Indication: OESOPHAGITIS
  3. PROTONIX [Suspect]
     Indication: GASTRIC ULCER
  4. VENTOLIN [Concomitant]
  5. ACTIFED [Concomitant]
  6. BACLOFEN [Concomitant]
  7. SYNTHROID [Concomitant]
  8. ZOLOFT [Concomitant]

REACTIONS (3)
  - DYSPEPSIA [None]
  - HEADACHE [None]
  - MALAISE [None]
